FAERS Safety Report 19181934 (Version 1)
Quarter: 2021Q2

REPORT INFORMATION
  Report Type: Report from Study
  Country: US (occurrence: US)
  Receive Date: 20210426
  Receipt Date: 20210426
  Transmission Date: 20210717
  Serious: Yes (Hospitalization)
  Sender: FDA-Public Use
  Company Number: US-BAUSCH-BL-2019-006102

PATIENT
  Age: 74 Year
  Sex: Female
  Weight: 63.56 kg

DRUGS (2)
  1. XIFAXAN [Suspect]
     Active Substance: RIFAXIMIN
     Indication: HEPATIC CIRRHOSIS
     Dosage: APPROXIMATELY STARTED 2 YEARS AGO
     Route: 048
     Dates: end: 2018
  2. XIFAXAN [Suspect]
     Active Substance: RIFAXIMIN
     Dosage: RESTARTED
     Route: 048

REACTIONS (10)
  - Ammonia increased [Recovered/Resolved]
  - Fluid retention [Not Recovered/Not Resolved]
  - Product availability issue [Unknown]
  - Insurance issue [Unknown]
  - Wheezing [Not Recovered/Not Resolved]
  - Therapy interrupted [Unknown]
  - Renal disorder [Not Recovered/Not Resolved]
  - Dysarthria [Recovered/Resolved]
  - Balance disorder [Recovered/Resolved]
  - Liver disorder [Not Recovered/Not Resolved]

NARRATIVE: CASE EVENT DATE: 2018
